FAERS Safety Report 4842387-1 (Version None)
Quarter: 2005Q4

REPORT INFORMATION
  Report Type: 
  Country: None (occurrence: None)
  Receive Date: 20051125
  Receipt Date: 20051110
  Transmission Date: 20060501
  Serious: Yes (Hospitalization)
  Sender: FDA-Public Use
  Company Number: DEU-2005-0001794

PATIENT
  Age: 83 Year
  Sex: Female

DRUGS (2)
  1. OXYCODONE HCL [Suspect]
     Indication: BACK PAIN
     Dosage: 20 MG, BID, ORAL
     Route: 048
  2. BUPRENORPHINE (BUPRENORPHINE) [Suspect]
     Indication: BACK PAIN
     Dosage: 35 MCG, Q72H, TRANSDERMAL
     Route: 062

REACTIONS (3)
  - BLOOD PRESSURE INCREASED [None]
  - HEART RATE INCREASED [None]
  - RESTLESSNESS [None]
